FAERS Safety Report 14215401 (Version 2)
Quarter: 2018Q1

REPORT INFORMATION
  Report Type: Report from Study
  Country: CA (occurrence: CA)
  Receive Date: 20171122
  Receipt Date: 20180111
  Transmission Date: 20180508
  Serious: Yes (Other)
  Sender: FDA-Public Use
  Company Number: CA-JNJFOC-20171115861

PATIENT
  Age: 53 Year
  Sex: Female
  Weight: 75 kg

DRUGS (1)
  1. REMICADE [Suspect]
     Active Substance: INFLIXIMAB
     Indication: CROHN^S DISEASE
     Route: 042

REACTIONS (4)
  - Pyoderma gangrenosum [Not Recovered/Not Resolved]
  - Gastroenteritis viral [Unknown]
  - Crohn^s disease [Not Recovered/Not Resolved]
  - Biopsy [Unknown]

NARRATIVE: CASE EVENT DATE: 20171101
